FAERS Safety Report 5546617-2 (Version None)
Quarter: 2007Q4

REPORT INFORMATION
  Report Type: 
  Country: None (occurrence: None)
  Receive Date: 20071211
  Receipt Date: 20071203
  Transmission Date: 20080405
  Serious: Yes (Other)
  Sender: FDA-Public Use
  Company Number: US-JNJFOC-20071201616

PATIENT
  Sex: Female
  Weight: 85.28 kg

DRUGS (6)
  1. DOXIL [Suspect]
     Dosage: 75% DOSE
     Route: 050
  2. DOXIL [Suspect]
     Dosage: 75% DOSE
     Route: 050
  3. DOXIL [Suspect]
     Indication: OVARIAN CANCER
     Dosage: 50% DOSE
     Route: 050
  4. SYNTHROID [Concomitant]
     Route: 065
  5. PROTONIX [Concomitant]
     Route: 065
  6. LEXAPRO [Concomitant]
     Route: 065

REACTIONS (3)
  - PALMAR-PLANTAR ERYTHRODYSAESTHESIA SYNDROME [None]
  - RASH [None]
  - SKIN LESION [None]
